FAERS Safety Report 7957587-1 (Version None)
Quarter: 2011Q4

REPORT INFORMATION
  Report Type: 
  Country: None (occurrence: None)
  Receive Date: 20111205
  Receipt Date: 20111129
  Transmission Date: 20120403
  Serious: Yes (Other)
  Sender: FDA-Public Use
  Company Number: TR-GLAXOSMITHKLINE-B0767039A

PATIENT
  Age: 60 Year
  Sex: Female

DRUGS (2)
  1. PAXIL [Suspect]
     Indication: PANIC ATTACK
     Dosage: 20MG PER DAY
     Route: 048
     Dates: start: 20090101
  2. HYZAAR [Concomitant]
     Indication: HYPERTENSION
     Route: 048

REACTIONS (5)
  - DYSKINESIA [None]
  - LOSS OF CONSCIOUSNESS [None]
  - TREMOR [None]
  - FOAMING AT MOUTH [None]
  - SKIN DISCOLOURATION [None]
